FAERS Safety Report 12173561 (Version 1)
Quarter: 2016Q1

REPORT INFORMATION
  Report Type: Spontaneous
  Country: US (occurrence: None)
  Receive Date: 20160311
  Receipt Date: 20160311
  Transmission Date: 20160526
  Serious: No
  Sender: FDA-Public Use
  Company Number: None

PATIENT
  Age: 58 Year
  Sex: Female
  Weight: 118 kg

DRUGS (25)
  1. GAMMAKED [Suspect]
     Active Substance: HUMAN IMMUNOGLOBULIN G
     Indication: MYASTHENIA GRAVIS
     Dosage: 60 GM / 600ML GAMMAGARD 10% QDX4DAYS MONTHLY INTRAVENOUS
     Route: 042
     Dates: start: 20160226, end: 20160226
  2. PREDNISONE. [Concomitant]
     Active Substance: PREDNISONE
  3. LOVASTATIN. [Concomitant]
     Active Substance: LOVASTATIN
  4. FIORICET [Concomitant]
     Active Substance: ACETAMINOPHEN\BUTALBITAL\CAFFEINE
  5. METFORMIN [Concomitant]
     Active Substance: METFORMIN HYDROCHLORIDE
  6. NOVOLOG [Concomitant]
     Active Substance: INSULIN ASPART
  7. AMLODIPINE [Concomitant]
     Active Substance: AMLODIPINE BESYLATE
  8. DIPHENHYDRAMINE. [Concomitant]
     Active Substance: DIPHENHYDRAMINE
  9. AZATHIOPRINE. [Concomitant]
     Active Substance: AZATHIOPRINE
  10. OFLOXACIN. [Concomitant]
     Active Substance: OFLOXACIN
  11. AMOXICILLIN. [Concomitant]
     Active Substance: AMOXICILLIN
  12. TRAMADOL. [Concomitant]
     Active Substance: TRAMADOL
  13. FENOFIBRATE. [Concomitant]
     Active Substance: FENOFIBRATE
  14. METHYLPREDNISOLONE. [Concomitant]
     Active Substance: METHYLPREDNISOLONE
  15. ACETAMINOPHEN. [Concomitant]
     Active Substance: ACETAMINOPHEN
  16. IBUPROFEN. [Concomitant]
     Active Substance: IBUPROFEN
  17. TEMAZEPAM. [Concomitant]
     Active Substance: TEMAZEPAM
  18. CLONIDINE. [Concomitant]
     Active Substance: CLONIDINE
  19. LANTUS SOLOSTAR PEN [Concomitant]
  20. CYCLOBENZAPRINE [Concomitant]
     Active Substance: CYCLOBENZAPRINE
  21. GERITOL [Concomitant]
     Active Substance: MINERALS\VITAMINS
  22. PYRIDOSTIGMINE [Concomitant]
     Active Substance: PYRIDOSTIGMINE
  23. PAROXETINE [Concomitant]
     Active Substance: PAROXETINE\PAROXETINE HYDROCHLORIDE
  24. VIT. B COMPLEX WITH C + IRON [Concomitant]
  25. LISINOPRIL/HCTZ [Concomitant]
     Active Substance: HYDROCHLOROTHIAZIDE\LISINOPRIL

REACTIONS (7)
  - Nausea [None]
  - Back pain [None]
  - Chills [None]
  - Neck pain [None]
  - Vomiting [None]
  - Tremor [None]
  - Diarrhoea [None]

NARRATIVE: CASE EVENT DATE: 20160226
